FAERS Safety Report 5102615-4 (Version None)
Quarter: 2006Q3

REPORT INFORMATION
  Report Type: 
  Country: None (occurrence: None)
  Receive Date: 20060912
  Receipt Date: 20060509
  Transmission Date: 20061208
  Serious: Yes (Hospitalization)
  Sender: FDA-Public Use
  Company Number: US-BAYER-200613503BWH

PATIENT
  Age: 66 Year
  Sex: Male
  Weight: 84 kg

DRUGS (26)
  1. NEXAVAR [Suspect]
     Indication: RENAL CELL CARCINOMA STAGE UNSPECIFIED
     Dosage: TOTAL DAILY DOSE: 400 MG  UNIT DOSE: 200 MG
     Route: 048
     Dates: start: 20060622, end: 20060817
  2. NEXAVAR [Suspect]
     Dosage: TOTAL DAILY DOSE: 400 MG  UNIT DOSE: 200 MG
     Route: 048
     Dates: start: 20060720
  3. NEXAVAR [Suspect]
     Dosage: TOTAL DAILY DOSE: 800 MG  UNIT DOSE: 200 MG
     Route: 048
     Dates: start: 20050901, end: 20050901
  4. NEXAVAR [Suspect]
     Dosage: TOTAL DAILY DOSE: 400 MG  UNIT DOSE: 200 MG
     Route: 048
     Dates: start: 20050901, end: 20060714
  5. MORPHINE [Concomitant]
  6. LEXAPRO [Concomitant]
     Indication: DEPRESSION
     Dosage: TOTAL DAILY DOSE: 20 MG
     Route: 048
     Dates: start: 20050804
  7. PREDNISONE TAB [Concomitant]
     Indication: CHRONIC LYMPHOCYTIC LEUKAEMIA
     Dosage: TOTAL DAILY DOSE: 5 MG
     Route: 048
     Dates: start: 20051027
  8. LIPITOR [Concomitant]
     Dosage: TOTAL DAILY DOSE: 20 MG
  9. GLUCOTROL [Concomitant]
     Indication: DIABETES MELLITUS
     Route: 048
     Dates: start: 19840101
  10. ZESTRIL [Concomitant]
     Indication: HYPERTENSION
     Route: 048
     Dates: start: 20050823
  11. ZESTRIL [Concomitant]
     Dosage: TOTAL DAILY DOSE: 10 MG
  12. GABAPENTIN [Concomitant]
     Dosage: TOTAL DAILY DOSE: 1200 MG
  13. AMITRIPTYLINE HCL [Concomitant]
     Dates: start: 20060717
  14. NEURONTIN [Concomitant]
     Indication: PAIN
     Route: 048
     Dates: start: 20050101
  15. NEURONTIN [Concomitant]
     Dates: start: 20060714
  16. ZIAC [Concomitant]
     Indication: HYPERTENSION
     Route: 048
     Dates: start: 20050728
  17. ZIAC [Concomitant]
     Dates: start: 20060609
  18. ENALAPRIL [Concomitant]
     Dosage: TOTAL DAILY DOSE: 2.5 MG
  19. ENALAPRIL [Concomitant]
     Dates: start: 20060703
  20. ATIVAN [Concomitant]
     Indication: ANXIETY
     Dosage: TOTAL DAILY DOSE: 3 MG
     Route: 048
     Dates: start: 20050728
  21. MIRALAX [Concomitant]
     Indication: CONSTIPATION
     Route: 048
     Dates: start: 20051129
  22. GLYCOLAX [Concomitant]
     Indication: CONSTIPATION
     Route: 048
     Dates: start: 20051129
  23. PREDNISOLONE [Concomitant]
     Indication: CHRONIC LYMPHOCYTIC LEUKAEMIA
     Route: 048
     Dates: start: 20051027
  24. ORAMORPH SR [Concomitant]
     Indication: PAIN
     Dosage: TOTAL DAILY DOSE: 400 MG
     Route: 048
     Dates: start: 20051006
  25. AMITRIPTYLINE HCL [Concomitant]
     Indication: DEPRESSION
     Dosage: TOTAL DAILY DOSE: 25 MG
     Route: 048
     Dates: start: 20060101
  26. LOVENOX [Concomitant]
     Indication: ANAEMIA
     Route: 058
     Dates: start: 20060624, end: 20060624

REACTIONS (12)
  - BLOOD POTASSIUM DECREASED [None]
  - CONSTIPATION [None]
  - DEHYDRATION [None]
  - DIARRHOEA [None]
  - DISORIENTATION [None]
  - MENTAL IMPAIRMENT [None]
  - RASH [None]
  - RED BLOOD CELL COUNT DECREASED [None]
  - RENAL FAILURE ACUTE [None]
  - SPEECH DISORDER [None]
  - WHITE BLOOD CELL COUNT DECREASED [None]
  - WHITE BLOOD CELL COUNT INCREASED [None]
